FAERS Safety Report 12842130 (Version 5)
Quarter: 2017Q1

REPORT INFORMATION
  Report Type: Spontaneous
  Country: US (occurrence: US)
  Receive Date: 20161013
  Receipt Date: 20170210
  Transmission Date: 20170428
  Serious: Yes (Other)
  Sender: FDA-Public Use
  Company Number: PHEH2016US026219

PATIENT
  Sex: Female
  Weight: 140 kg

DRUGS (2)
  1. ZOFRAN [Suspect]
     Active Substance: ONDANSETRON HYDROCHLORIDE
     Indication: VOMITING IN PREGNANCY
     Dosage: 8 MG, BID
     Route: 048
     Dates: start: 20120319, end: 20120601
  2. ONDANSETRON. [Suspect]
     Active Substance: ONDANSETRON
     Indication: VOMITING IN PREGNANCY
     Dosage: 08 MG, BID
     Route: 065
     Dates: start: 20120319, end: 20120601

REACTIONS (8)
  - Vaginal haemorrhage [Unknown]
  - Thrombocytopenia [Unknown]
  - Rash [Unknown]
  - Cervical dysplasia [Unknown]
  - Amniotic cavity infection [Unknown]
  - Product use issue [Unknown]
  - Anaemia of pregnancy [Unknown]
  - Maternal exposure during pregnancy [Unknown]
